FAERS Safety Report 6920275-4 (Version None)
Quarter: 2010Q3

REPORT INFORMATION
  Report Type: 
  Country: None (occurrence: None)
  Receive Date: 20100809
  Receipt Date: 20100727
  Transmission Date: 20110219
  Serious: Yes (Hospitalization)
  Sender: FDA-Public Use
  Company Number: CLOF-10445

PATIENT
  Age: 9 Year
  Sex: Female
  Weight: 23 kg

DRUGS (22)
  1. CLOFARABINE (CLOFARABINE) [Suspect]
     Indication: ACUTE MYELOID LEUKAEMIA
     Dosage: 25 MG, QDX5, INTRAVENOUS; 27 MG, QD, INTRAVENOUS
     Route: 042
     Dates: start: 20061121, end: 20061125
  2. CLOFARABINE (CLOFARABINE) [Suspect]
     Indication: ACUTE MYELOID LEUKAEMIA
     Dosage: 25 MG, QDX5, INTRAVENOUS; 27 MG, QD, INTRAVENOUS
     Route: 042
     Dates: start: 20070119, end: 20070122
  3. ETOPOSIDE [Suspect]
     Indication: ACUTE MYELOID LEUKAEMIA
     Dosage: 90 MG, QDX5, INTRAVENOUS; 90 MG, QD, INTRAVENOUS
     Route: 042
     Dates: start: 20061121, end: 20061125
  4. ETOPOSIDE [Suspect]
     Indication: ACUTE MYELOID LEUKAEMIA
     Dosage: 90 MG, QDX5, INTRAVENOUS; 90 MG, QD, INTRAVENOUS
     Route: 042
     Dates: start: 20070119, end: 20070122
  5. CYCLOPHOSPHAMIDE [Suspect]
     Indication: ACUTE MYELOID LEUKAEMIA
     Dosage: 400 MG, QDX5, INTRAVENOUS; 400 MG, QD, INTRAVENOUS
     Route: 042
     Dates: start: 20061121, end: 20061125
  6. CYCLOPHOSPHAMIDE [Suspect]
     Indication: ACUTE MYELOID LEUKAEMIA
     Dosage: 400 MG, QDX5, INTRAVENOUS; 400 MG, QD, INTRAVENOUS
     Route: 042
     Dates: start: 20070119, end: 20070122
  7. VORICONAZOLE [Concomitant]
  8. BACTRIM [Concomitant]
  9. POTASSIUM CHLORIDE [Concomitant]
  10. SENNA (SENNA ALEXANDRINA) [Concomitant]
  11. FILGRASTIM (FILGRASTIM) [Concomitant]
  12. PERIACTIN [Concomitant]
  13. CYTARABINE [Concomitant]
  14. ACETAMINOPHEN [Concomitant]
  15. CYCLOPENTOLATE (CYCLOPENTOLATE HYDROCHLORIDE) [Concomitant]
  16. DIPHENHYDRAMINE (DIPHENHYDRAMINE, SODIUM CITRATE) [Concomitant]
  17. LIDOCAINE-EPINEPHRINE (EPINEPHRINE, LIDOCAINE HYDROCHLORIDE) [Concomitant]
  18. HEPARIN [Concomitant]
  19. ZOFRAN [Concomitant]
  20. OXYMERAZOLINE (OXYMERAZOLINE) [Concomitant]
  21. MAGNESIUM SULFATE [Concomitant]
  22. MAGNESIUM GLUCONATE (MAGNESIUM GLUCONATE) [Concomitant]

REACTIONS (11)
  - ATELECTASIS [None]
  - BLOOD PRESSURE DECREASED [None]
  - CENTRAL NERVOUS SYSTEM INFECTION [None]
  - HAEMOGLOBIN DECREASED [None]
  - HEART RATE INCREASED [None]
  - LUNG INFECTION [None]
  - MENINGITIS STREPTOCOCCAL [None]
  - OPPORTUNISTIC INFECTION [None]
  - RASH PRURITIC [None]
  - RIB FRACTURE [None]
  - STOMATOCOCCAL INFECTION [None]
